FAERS Safety Report 9290898 (Version 3)
Quarter: 2013Q3

REPORT INFORMATION
  Report Type: Spontaneous
  Country: BR (occurrence: BR)
  Receive Date: 20130515
  Receipt Date: 20130830
  Transmission Date: 20140515
  Serious: Yes (Other)
  Sender: FDA-Public Use
  Company Number: PHHY2013BR048204

PATIENT
  Sex: Female
  Weight: 56 kg

DRUGS (3)
  1. RITALIN LA [Suspect]
     Indication: DISTURBANCE IN ATTENTION
     Dosage: 1 DF, DAILY
     Route: 048
  2. RITALINA [Suspect]
     Indication: DISTURBANCE IN ATTENTION
     Dosage: 2 DF, DAILY
     Route: 048
     Dates: start: 201211
  3. RITALINA [Suspect]
     Dosage: UNK UKN, UNK

REACTIONS (5)
  - General physical health deterioration [Unknown]
  - Memory impairment [Unknown]
  - Aggression [Recovered/Resolved]
  - Agitation [Recovered/Resolved]
  - Nervousness [Recovered/Resolved]
